FAERS Safety Report 19926612 (Version 2)
Quarter: 2024Q4

REPORT INFORMATION
  Report Type: Spontaneous
  Country: US (occurrence: US)
  Receive Date: 20211007
  Receipt Date: 20241007
  Transmission Date: 20250115
  Serious: No
  Sender: RECKITT BENCKISER
  Company Number: US-INDIVIOR US-INDV-125830-2020

PATIENT
  Sex: Female

DRUGS (2)
  1. SUBUTEX [Suspect]
     Active Substance: BUPRENORPHINE HYDROCHLORIDE
     Indication: Analgesic therapy
     Dosage: UNK
     Route: 065
  2. SUBUTEX [Suspect]
     Active Substance: BUPRENORPHINE HYDROCHLORIDE
     Dosage: 2 MILLIGRAM, UNKNOWN
     Route: 065

REACTIONS (8)
  - Inappropriate schedule of product discontinuation [Recovered/Resolved]
  - Off label use [Not Recovered/Not Resolved]
  - Dental caries [Unknown]
  - Tooth loss [Not Recovered/Not Resolved]
  - Joint injury [Not Recovered/Not Resolved]
  - Musculoskeletal discomfort [Unknown]
  - Drug withdrawal syndrome [Unknown]
  - Drug dependence [Unknown]
